FAERS Safety Report 8031545-3 (Version None)
Quarter: 2012Q1

REPORT INFORMATION
  Report Type: 
  Country: None (occurrence: None)
  Receive Date: 20120109
  Receipt Date: 20111230
  Transmission Date: 20120608
  Serious: Yes (Other)
  Sender: FDA-Public Use
  Company Number: FI-NOVOPROD-342386

PATIENT

DRUGS (5)
  1. VICTOZA [Suspect]
     Indication: PRODUCT USED FOR UNKNOWN INDICATION
     Dosage: 0.6 MG, QD
     Route: 065
     Dates: start: 20111025
  2. VICTOZA [Suspect]
     Dosage: 1.2 MG, QD
     Route: 065
     Dates: start: 20111229, end: 20111230
  3. ATACAND [Concomitant]
     Indication: BLOOD PRESSURE ABNORMAL
     Dosage: 8 MG, QD
     Route: 048
  4. VICTOZA [Suspect]
     Dosage: 0.6 MG, QD
     Route: 065
  5. VICTOZA [Suspect]
     Dosage: 1.2 MG, QD
     Route: 065

REACTIONS (2)
  - ATRIAL FIBRILLATION [None]
  - WEIGHT DECREASED [None]
